FAERS Safety Report 14907136 (Version 1)
Quarter: 2018Q2

REPORT INFORMATION
  Report Type: Spontaneous
  Country: DE (occurrence: DE)
  Receive Date: 20180517
  Receipt Date: 20180517
  Transmission Date: 20180711
  Serious: Yes (Hospitalization)
  Sender: FDA-Public Use
  Company Number: DE-TEVA-2018-DE-893317

PATIENT
  Age: 46 Year
  Sex: Female
  Weight: 63 kg

DRUGS (2)
  1. BECLOMETHASONE-RATIOPHARM 0.10 MG DOSING AEROSOL [Suspect]
     Active Substance: BECLOMETHASONE DIPROPIONATE
     Indication: DYSPNOEA
     Dosage: 40 MILLIGRAM DAILY; DAILY 1 BURST FOR APPROX. 5-7 DAYS
     Route: 055
     Dates: start: 201802
  2. BECLOMETHASONE-RATIOPHARM 0.10 MG DOSING AEROSOL [Suspect]
     Active Substance: BECLOMETHASONE DIPROPIONATE
     Indication: COUGH
     Dosage: DAILY EACH 1 BURST?BECLOMETHASONE-RATIOPHARM 0.10 MG DOSING AEROSOL
     Route: 055
     Dates: start: 20180317, end: 20180320

REACTIONS (4)
  - Urticaria [Not Recovered/Not Resolved]
  - Oropharyngeal pain [Not Recovered/Not Resolved]
  - Pneumonitis [Recovered/Resolved]
  - Cough [Not Recovered/Not Resolved]

NARRATIVE: CASE EVENT DATE: 201802
